FAERS Safety Report 15614527 (Version 3)
Quarter: 2019Q1

REPORT INFORMATION
  Report Type: Report from Study
  Country: CA (occurrence: CA)
  Receive Date: 20181113
  Receipt Date: 20190115
  Transmission Date: 20190417
  Serious: Yes (Congenital Anomaly, Other)
  Sender: FDA-Public Use
  Company Number: CA-GILEAD-2018-0370827

PATIENT

DRUGS (1)
  1. ELVITEGRAVIR [Suspect]
     Active Substance: ELVITEGRAVIR
     Indication: HIV INFECTION
     Route: 064

REACTIONS (5)
  - Congenital cystic kidney disease [Unknown]
  - Foetal exposure during pregnancy [Not Recovered/Not Resolved]
  - Anal atresia [Unknown]
  - Polydactyly [Unknown]
  - Patent ductus arteriosus [Unknown]
